FAERS Safety Report 15983302 (Version 1)
Quarter: 2019Q1

REPORT INFORMATION
  Report Type: Report from Study
  Country: US (occurrence: US)
  Receive Date: 20190220
  Receipt Date: 20190220
  Transmission Date: 20190418
  Serious: Yes (Death, Hospitalization, Other)
  Sender: FDA-Public Use
  Company Number: US-ROCHE-2266755

PATIENT
  Age: 65 Year
  Sex: Female
  Weight: 77.1 kg

DRUGS (20)
  1. INOTUZUMAB OZOGAMICIN [Suspect]
     Active Substance: INOTUZUMAB OZOGAMICIN
     Indication: ACUTE LYMPHOCYTIC LEUKAEMIA
     Route: 042
     Dates: start: 20180718, end: 20180924
  2. VANTIN (CEFPODOXIME) [Concomitant]
  3. LEXAPRO [Concomitant]
     Active Substance: ESCITALOPRAM OXALATE
  4. SENOKOT-S [Concomitant]
     Active Substance: DOCUSATE SODIUM\SENNOSIDES
  5. RITUXIMAB. [Suspect]
     Active Substance: RITUXIMAB
     Indication: ACUTE LYMPHOCYTIC LEUKAEMIA
     Route: 042
     Dates: start: 20180817, end: 20180924
  6. BLINATUMOMAB [Suspect]
     Active Substance: BLINATUMOMAB
     Indication: ACUTE LYMPHOCYTIC LEUKAEMIA
     Route: 042
     Dates: start: 20181127, end: 20181224
  7. DRISDOL [Concomitant]
     Active Substance: ERGOCALCIFEROL
  8. MIRALAX [Concomitant]
     Active Substance: POLYETHYLENE GLYCOL 3350
  9. VALTREX [Concomitant]
     Active Substance: VALACYCLOVIR HYDROCHLORIDE
  10. TOPROL XL [Concomitant]
     Active Substance: METOPROLOL SUCCINATE
  11. ULTRAM [Concomitant]
     Active Substance: TRAMADOL HYDROCHLORIDE
  12. VFEND [Concomitant]
     Active Substance: VORICONAZOLE
  13. KEPPRA [Concomitant]
     Active Substance: LEVETIRACETAM
  14. METAMUCIL [Concomitant]
     Active Substance: PLANTAGO SEED
  15. ACTIGALL [Concomitant]
     Active Substance: URSODIOL
  16. ZESTRIL [Concomitant]
     Active Substance: LISINOPRIL
  17. ZOFRAN [Concomitant]
     Active Substance: ONDANSETRON HYDROCHLORIDE
  18. PROTONIX (PANTOPRAZOLE SODIUM) [Concomitant]
  19. LIPITOR [Concomitant]
     Active Substance: ATORVASTATIN CALCIUM
  20. MAOX [Concomitant]

REACTIONS (1)
  - Venoocclusive liver disease [Fatal]

NARRATIVE: CASE EVENT DATE: 20190111
